FAERS Safety Report 5897231-0 (Version None)
Quarter: 2008Q3

REPORT INFORMATION
  Report Type: 
  Country: None (occurrence: None)
  Receive Date: 20080923
  Receipt Date: 20080910
  Transmission Date: 20090109
  Serious: Yes (Hospitalization, Other)
  Sender: FDA-Public Use
  Company Number: 52279

PATIENT
  Age: 32 Year
  Sex: Male

DRUGS (1)
  1. BLEOMYCIN FOR INJ. USP 15 UNITS-BEDFORD LABS, INC. [Suspect]
     Indication: TESTICULAR GERM CELL CANCER

REACTIONS (4)
  - BLOOD LACTATE DEHYDROGENASE INCREASED [None]
  - BLOOD LACTIC ACID INCREASED [None]
  - SPLENIC INFARCTION [None]
  - TRUNCUS COELIACUS THROMBOSIS [None]
